FAERS Safety Report 10348350 (Version 2)
Quarter: 2014Q4

REPORT INFORMATION
  Report Type: Spontaneous
  Country: US (occurrence: US)
  Receive Date: 20140729
  Receipt Date: 20141120
  Transmission Date: 20150528
  Serious: No
  Sender: FDA-Public Use
  Company Number: US-GILEAD-2014-0110280

PATIENT
  Age: 65 Year
  Sex: Female

DRUGS (4)
  1. LETAIRIS [Suspect]
     Active Substance: AMBRISENTAN
     Indication: UNEVALUABLE EVENT
  2. LETAIRIS [Suspect]
     Active Substance: AMBRISENTAN
     Indication: PULMONARY HYPERTENSION
     Dosage: 10 MG, QD
     Route: 065
     Dates: start: 20131203
  3. VENTAVIS [Concomitant]
     Active Substance: ILOPROST
  4. ADCIRCA [Concomitant]
     Active Substance: TADALAFIL

REACTIONS (1)
  - Hypoaesthesia [Unknown]
